FAERS Safety Report 10247897 (Version 1)
Quarter: 2014Q2

REPORT INFORMATION
  Report Type: Spontaneous
  Country: BR (occurrence: BR)
  Receive Date: 20140619
  Receipt Date: 20140619
  Transmission Date: 20141212
  Serious: Yes (Death)
  Sender: FDA-Public Use
  Company Number: BR-ACTAVIS-2014-13757

PATIENT
  Age: 79 Year
  Sex: Female

DRUGS (3)
  1. CIPROFLOXACIN HYDROCHLORIDE (UNKNOWN) [Suspect]
     Indication: ANTIBIOTIC THERAPY
     Dosage: 400 MG, BID FOR 7 DAYS
     Route: 065
  2. IMIPENEM [Suspect]
     Indication: ANTIBIOTIC THERAPY
     Dosage: 250 MG, Q6H FOR 2 DAYS
     Route: 065
  3. POLYMYXIN B [Suspect]
     Indication: ANTIBIOTIC THERAPY
     Dosage: , FOR 8 DAYS500000 IU, BID
     Route: 065

REACTIONS (5)
  - Klebsiella sepsis [Fatal]
  - Renal failure [Fatal]
  - Respiratory failure [Fatal]
  - Pathogen resistance [Fatal]
  - Drug ineffective [Fatal]
